FAERS Safety Report 9300568 (Version 2)
Quarter: 2013Q3

REPORT INFORMATION
  Report Type: Spontaneous
  Country: US (occurrence: US)
  Receive Date: 20130521
  Receipt Date: 20130704
  Transmission Date: 20140515
  Serious: Yes (Other)
  Sender: FDA-Public Use
  Company Number: US-PFIZER INC-2013151210

PATIENT
  Age: 83 Year
  Sex: Female
  Weight: 52.15 kg

DRUGS (2)
  1. XALATAN [Suspect]
     Indication: GLAUCOMA
     Dosage: UNK, 1X/DAY
     Route: 047
  2. XALATAN [Suspect]
     Dosage: UNK

REACTIONS (3)
  - Glaucoma [Unknown]
  - Incorrect dose administered [Unknown]
  - Product dropper issue [Unknown]
